FAERS Safety Report 9705566 (Version 2)
Quarter: 2013Q4

REPORT INFORMATION
  Report Type: Spontaneous
  Country: US (occurrence: US)
  Receive Date: 20131122
  Receipt Date: 20131122
  Transmission Date: 20140711
  Serious: No
  Sender: FDA-Public Use
  Company Number: US-GILEAD-2008-0016964

PATIENT
  Age: 57 Year
  Sex: Male
  Weight: 99.79 kg

DRUGS (24)
  1. LETAIRIS [Suspect]
     Indication: PULMONARY ARTERIAL HYPERTENSION
     Route: 048
     Dates: start: 20080122
  2. PRIMIDONE [Concomitant]
     Route: 048
  3. PRAVASTATIN [Concomitant]
     Route: 048
  4. TRIMETHOPRIM [Concomitant]
     Route: 048
  5. METOLAZONE [Concomitant]
     Route: 048
  6. GLIMEPIRIDE [Concomitant]
     Route: 048
  7. DIAZEPAM [Concomitant]
     Route: 048
  8. AVODART [Concomitant]
  9. SPIRONOLACTONE [Concomitant]
     Route: 048
  10. LEXAPRO [Concomitant]
     Route: 048
  11. ASPIRIN [Concomitant]
     Route: 048
  12. GLUMETZA ER [Concomitant]
     Route: 048
  13. TESTIM [Concomitant]
     Route: 061
  14. AVANDARYL [Concomitant]
     Route: 048
  15. LASIX [Concomitant]
     Route: 048
  16. ANTIVERT [Concomitant]
     Route: 048
  17. NEURONTIN [Concomitant]
     Route: 048
  18. GEMFIBROZIL [Concomitant]
     Route: 048
  19. TERAZOSIN [Concomitant]
     Route: 048
  20. CYMBALTA [Concomitant]
     Route: 048
  21. CAPTOPRIL [Concomitant]
     Route: 048
  22. NIFEDIPINE [Concomitant]
     Route: 048
  23. DIGOXIN [Concomitant]
     Route: 048
  24. POTASSIUM CHLORIDE [Concomitant]
     Route: 048

REACTIONS (2)
  - Dyspnoea [Unknown]
  - Oedema [Unknown]
